FAERS Safety Report 5147357-4 (Version None)
Quarter: 2006Q4

REPORT INFORMATION
  Report Type: 
  Country: None (occurrence: None)
  Receive Date: 20061103
  Receipt Date: 20061011
  Transmission Date: 20070319
  Serious: Yes (Other)
  Sender: FDA-Public Use
  Company Number: RB-4234-2006

PATIENT
  Age: 29 Year
  Sex: Female
  Weight: 63.5036 kg

DRUGS (2)
  1. SUBOXONE [Suspect]
     Dosage: TID SUBLINGUAL
     Route: 060
     Dates: start: 20061002
  2. SUBUTEX [Suspect]

REACTIONS (3)
  - ABORTION SPONTANEOUS [None]
  - BLIGHTED OVUM [None]
  - DRUG EXPOSURE DURING PREGNANCY [None]
